FAERS Safety Report 5514154-7 (Version None)
Quarter: 2007Q4

REPORT INFORMATION
  Report Type: 
  Country: None (occurrence: None)
  Receive Date: 20071106
  Receipt Date: 20061122
  Transmission Date: 20080405
  Serious: Yes (Other)
  Sender: FDA-Public Use
  Company Number: US200611004655

PATIENT
  Age: 35 Year
  Sex: Male

DRUGS (4)
  1. PROZAC [Suspect]
     Indication: DEPRESSION
     Dosage: 20 MG, ORAL ; 140 MG, ORAL
     Route: 048
     Dates: start: 20061117, end: 20061117
  2. PROZAC [Suspect]
     Indication: DEPRESSION
     Dosage: 20 MG, ORAL ; 140 MG, ORAL
     Route: 048
     Dates: start: 20061101
  3. PCP (CODEINE PHOSPHATE, PHENAZONE, PHENOBARBITAL) [Concomitant]
  4. INSULIN (INSULIN) [Concomitant]

REACTIONS (7)
  - AMNESIA [None]
  - BLOOD PRESSURE INCREASED [None]
  - CEREBROVASCULAR ACCIDENT [None]
  - CONVULSION [None]
  - INTENTIONAL OVERDOSE [None]
  - REPETITIVE SPEECH [None]
  - VOMITING [None]
